FAERS Safety Report 23788977 (Version 1)
Quarter: 2024Q2

REPORT INFORMATION
  Report Type: Spontaneous
  Country: US (occurrence: US)
  Receive Date: 20240426
  Receipt Date: 20240426
  Transmission Date: 20240715
  Serious: Yes (Other)
  Sender: FDA-Public Use
  Company Number: US-ALMIRALL, LLC-2024AQU000046

PATIENT
  Age: 67 Year
  Sex: Female

DRUGS (8)
  1. DAPSONE [Suspect]
     Active Substance: DAPSONE
     Indication: Subcorneal pustular dermatosis
     Dosage: 100 MILLIGRAM UP TITRATION AFTER 10 DAYS,
     Route: 065
  2. DAPSONE [Suspect]
     Active Substance: DAPSONE
     Dosage: 50 MILLIGRAM, QD
     Route: 065
  3. ADALIMUMAB [Suspect]
     Active Substance: ADALIMUMAB\ISOPROPYL ALCOHOL
     Indication: Subcorneal pustular dermatosis
     Dosage: 40 MILLIGRAM,Q2WEEK
     Route: 065
  4. ACITRETIN [Suspect]
     Active Substance: ACITRETIN
     Indication: Subcorneal pustular dermatosis
     Dosage: 10 MILLIGRAM, QD
     Route: 065
     Dates: start: 202206, end: 2022
  5. ACITRETIN [Suspect]
     Active Substance: ACITRETIN
     Dosage: 20 MILLIGRAM, QD
     Route: 065
     Dates: start: 2022, end: 2022
  6. COLCHICINE [Concomitant]
     Active Substance: COLCHICINE
     Indication: Subcorneal pustular dermatosis
     Dosage: 0.6 MILLIGRAM, QD
     Route: 048
     Dates: start: 2023, end: 2023
  7. COLCHICINE [Concomitant]
     Active Substance: COLCHICINE
     Dosage: 1.2 MILLIGRAM, QD
     Route: 065
     Dates: start: 2023
  8. PREDNISONE [Concomitant]
     Active Substance: PREDNISONE
     Indication: Subcorneal pustular dermatosis
     Dosage: 40 MILLIGRAM, QD
     Route: 065

REACTIONS (1)
  - Drug reaction with eosinophilia and systemic symptoms [Recovering/Resolving]
